FAERS Safety Report 19837971 (Version 2)
Quarter: 2021Q3

REPORT INFORMATION
  Report Type: Spontaneous
  Country: BR (occurrence: BR)
  Receive Date: 20210916
  Receipt Date: 20210920
  Transmission Date: 20211014
  Serious: Yes (Death, Other)
  Sender: FDA-Public Use
  Company Number: BR-TEVA-2021-BR-1954252

PATIENT
  Age: 71 Year
  Sex: Male
  Weight: 83 kg

DRUGS (3)
  1. CALCIUM FOLINATE [Concomitant]
     Active Substance: LEUCOVORIN CALCIUM
  2. FLUOROURACIL. [Concomitant]
     Active Substance: FLUOROURACIL
  3. TEVAOXALI [Suspect]
     Active Substance: OXALIPLATIN
     Indication: GASTRIC CANCER
     Route: 042
     Dates: end: 202105

REACTIONS (1)
  - Pancreatic carcinoma [Fatal]
